FAERS Safety Report 18418489 (Version 1)
Quarter: 2020Q4

REPORT INFORMATION
  Report Type: Spontaneous
  Country: US (occurrence: US)
  Receive Date: 20201023
  Receipt Date: 20201023
  Transmission Date: 20210114
  Serious: No
  Sender: FDA-Public Use
  Company Number: US-SA-2020SA292407

PATIENT

DRUGS (1)
  1. DUPIXENT [Suspect]
     Active Substance: DUPILUMAB
     Dosage: UNK

REACTIONS (4)
  - Urticaria [Unknown]
  - Unevaluable event [Unknown]
  - Adverse drug reaction [Unknown]
  - Haematoma [Unknown]

NARRATIVE: CASE EVENT DATE: 2020
